FAERS Safety Report 5878232-5 (Version None)
Quarter: 2008Q3

REPORT INFORMATION
  Report Type: 
  Country: None (occurrence: None)
  Receive Date: 20080911
  Receipt Date: 20080909
  Transmission Date: 20090109
  Serious: Yes (Death, Hospitalization)
  Sender: FDA-Public Use
  Company Number: GB-BRISTOL-MYERS SQUIBB COMPANY-14304679

PATIENT
  Age: 61 Year
  Sex: Female

DRUGS (4)
  1. IXABEPILONE [Suspect]
     Route: 042
     Dates: start: 20080725, end: 20080725
  2. MORPHINE [Concomitant]
  3. AMITRIPTYLINE HCL [Concomitant]
  4. WARFARIN SODIUM [Concomitant]

REACTIONS (2)
  - GENERAL PHYSICAL HEALTH DETERIORATION [None]
  - NEUTROPENIC SEPSIS [None]
